FAERS Safety Report 5753004-0 (Version None)
Quarter: 2008Q2

REPORT INFORMATION
  Report Type: 
  Country: None (occurrence: None)
  Receive Date: 20080527
  Receipt Date: 20080515
  Transmission Date: 20081010
  Serious: Yes (Death)
  Sender: FDA-Public Use
  Company Number: MSTR-NO-0805S-0022

PATIENT
  Age: 69 Year
  Sex: Male
  Weight: 53 kg

DRUGS (1)
  1. METASTRON [Suspect]
     Indication: METASTATIC PAIN
     Dosage: 106 MGQ, SINGLE DOSE I.V.
     Route: 042
     Dates: start: 20080509, end: 20080509

REACTIONS (2)
  - ELECTROLYTE IMBALANCE [None]
  - WHITE BLOOD CELL COUNT DECREASED [None]
